FAERS Safety Report 6820341-8 (Version None)
Quarter: 2010Q3

REPORT INFORMATION
  Report Type: 
  Country: None (occurrence: None)
  Receive Date: 20100707
  Receipt Date: 20100629
  Transmission Date: 20110219
  Serious: Yes (Hospitalization)
  Sender: FDA-Public Use
  Company Number: BR-SANOFI-AVENTIS-2010SA038170

PATIENT
  Sex: Female
  Weight: 23.5 kg

DRUGS (5)
  1. LANTUS [Suspect]
     Indication: TYPE 1 DIABETES MELLITUS
     Route: 058
     Dates: end: 20080101
  2. LANTUS [Suspect]
     Route: 058
     Dates: start: 20080101, end: 20080101
  3. LANTUS [Suspect]
     Route: 058
     Dates: start: 20080101
  4. OPTIPEN [Suspect]
     Indication: TYPE 1 DIABETES MELLITUS
  5. NOVORAPID [Concomitant]
     Indication: TYPE 1 DIABETES MELLITUS
     Route: 058

REACTIONS (7)
  - HYPERGLYCAEMIA [None]
  - LIP DISCOLOURATION [None]
  - OFF LABEL USE [None]
  - PAIN [None]
  - PHARYNGITIS [None]
  - PYREXIA [None]
  - TONGUE DISORDER [None]
